FAERS Safety Report 5171238-3 (Version None)
Quarter: 2006Q4

REPORT INFORMATION
  Report Type: 
  Country: None (occurrence: None)
  Receive Date: 20061213
  Receipt Date: 20060705
  Transmission Date: 20070319
  Serious: Yes (Hospitalization)
  Sender: FDA-Public Use
  Company Number: US-AMGEN-STX185358

PATIENT
  Sex: Female

DRUGS (3)
  1. ENBREL [Suspect]
     Indication: RHEUMATOID ARTHRITIS
     Route: 058
     Dates: start: 20000101
  2. ARAVA [Concomitant]
     Route: 048
     Dates: start: 20060401
  3. METHOTREXATE [Concomitant]
     Route: 030
     Dates: start: 19970101

REACTIONS (6)
  - EYE PAIN [None]
  - HEADACHE [None]
  - LEUKOPENIA [None]
  - NEUTROPENIA [None]
  - RENAL ABSCESS [None]
  - SEPSIS [None]
